FAERS Safety Report 7874681-4 (Version None)
Quarter: 2011Q4

REPORT INFORMATION
  Report Type: 
  Country: None (occurrence: None)
  Receive Date: 20111031
  Receipt Date: 20111024
  Transmission Date: 20120403
  Serious: No
  Sender: FDA-Public Use
  Company Number: US-PFIZER INC-2011258833

PATIENT
  Sex: Male
  Weight: 88.435 kg

DRUGS (10)
  1. MONTELUKAST SODIUM [Concomitant]
     Dosage: 10 MG, UNK
  2. VITAMIN B6 [Concomitant]
     Dosage: 250 MG, UNK
  3. ALLEGRA D 24 HOUR [Concomitant]
     Dosage: UNK
  4. FLONASE [Concomitant]
     Dosage: 0.05%
  5. VITAMIN D [Concomitant]
     Dosage: 2000 IU, UNK
  6. SUTENT [Suspect]
     Dosage: 37.5 MG (3 CAPSULES OF 12.5 MG), 1X/DAY, 3 WEEKS ON/2 WEEKS OFF
     Route: 048
  7. RESTORIL [Concomitant]
     Dosage: 22.5 MG, UNK
  8. MIRALAX [Concomitant]
     Dosage: 3350 NF
  9. ZETIA [Concomitant]
     Dosage: 10 MG, UNK
  10. TRILIPIX [Concomitant]
     Dosage: 45 MG, UNK

REACTIONS (2)
  - SKIN LESION [None]
  - ORAL HERPES [None]
